FAERS Safety Report 5134092-1 (Version None)
Quarter: 2006Q4

REPORT INFORMATION
  Report Type: 
  Country: None (occurrence: None)
  Receive Date: 20061024
  Receipt Date: 20060531
  Transmission Date: 20070319
  Serious: Yes (Hospitalization)
  Sender: FDA-Public Use
  Company Number: US-SANOFI-SYNTHELABO-A03200603569

PATIENT
  Sex: Male
  Weight: 104.31 kg

DRUGS (9)
  1. ACIPHEX [Concomitant]
     Dosage: 20MG INTERMITTENTLY
     Route: 048
     Dates: start: 20050101
  2. EFFEXOR XR [Concomitant]
     Route: 048
     Dates: start: 20040101
  3. SYNTHROID [Concomitant]
     Route: 048
  4. FLOMAX [Concomitant]
     Route: 048
     Dates: start: 20051201
  5. TOPROL-XL [Concomitant]
     Route: 048
     Dates: start: 20010101
  6. COZAAR [Concomitant]
     Route: 048
     Dates: start: 20010101
  7. CARTIA XT [Concomitant]
     Route: 048
     Dates: start: 20030101
  8. PLAVIX [Suspect]
     Indication: ANTIPLATELET THERAPY
     Route: 048
     Dates: start: 20030101, end: 20060501
  9. MULTIVITAMIN [Concomitant]

REACTIONS (2)
  - OEDEMA PERIPHERAL [None]
  - THROMBOSIS [None]
